FAERS Safety Report 24396746 (Version 1)
Quarter: 2024Q4

REPORT INFORMATION
  Report Type: Spontaneous
  Country: US (occurrence: None)
  Receive Date: 20241003
  Receipt Date: 20241003
  Transmission Date: 20250115
  Serious: Yes (Life-Threatening, Hospitalization)
  Sender: Public
  Company Number: None

PATIENT
  Age: 49 Year
  Sex: Male
  Weight: 74.25 kg

DRUGS (3)
  1. CAPECITABINE [Suspect]
     Active Substance: CAPECITABINE
     Indication: Colon cancer
     Dosage: OTHER QUANTITY : 4 TABLET(S);?FREQUENCY : TWICE A DAY;?
     Route: 048
     Dates: start: 20240207, end: 20240219
  2. BUSPIRONE [Concomitant]
     Active Substance: BUSPIRONE HYDROCHLORIDE
  3. SILDENAFIL [Concomitant]
     Active Substance: SILDENAFIL

REACTIONS (27)
  - Toxicity to various agents [None]
  - Diarrhoea [None]
  - Nausea [None]
  - Vomiting [None]
  - Stomatitis [None]
  - Thermal burn [None]
  - Thermal burns of eye [None]
  - Visual impairment [None]
  - Oropharyngeal pain [None]
  - Rhinalgia [None]
  - Candida infection [None]
  - Bladder hypertrophy [None]
  - Oesophagitis [None]
  - Hiccups [None]
  - Sinus tachycardia [None]
  - Confusional state [None]
  - Hallucination [None]
  - Large intestinal obstruction [None]
  - Pneumatosis intestinalis [None]
  - Thrombocytopenia [None]
  - Coagulopathy [None]
  - Gastrointestinal necrosis [None]
  - Volvulus [None]
  - Blood potassium decreased [None]
  - Alopecia [None]
  - Deafness [None]
  - Onychomadesis [None]

NARRATIVE: CASE EVENT DATE: 20240219
